FAERS Safety Report 7075043-2 (Version None)
Quarter: 2010Q4

REPORT INFORMATION
  Report Type: 
  Country: None (occurrence: None)
  Receive Date: 20101029
  Receipt Date: 20100224
  Transmission Date: 20110411
  Serious: No
  Sender: FDA-Public Use
  Company Number: US-WYE-H13825810

PATIENT
  Sex: Male

DRUGS (1)
  1. ALAVERT D-12 [Suspect]

REACTIONS (1)
  - RESTLESSNESS [None]
